FAERS Safety Report 7329073-3 (Version None)
Quarter: 2011Q1

REPORT INFORMATION
  Report Type: 
  Country: None (occurrence: None)
  Receive Date: 20110225
  Receipt Date: 20110225
  Transmission Date: 20110831
  Serious: Yes (Hospitalization)
  Sender: FDA-Public Use
  Company Number: None

PATIENT
  Sex: Male
  Weight: 76.2043 kg

DRUGS (2)
  1. RITUXAN [Suspect]
     Indication: NON-HODGKIN'S LYMPHOMA
     Dosage: 800 ONCE WEEKLY IV DRIP
     Route: 041
     Dates: start: 20110125, end: 20110125
  2. REVLIMID [Suspect]
     Indication: NON-HODGKIN'S LYMPHOMA
     Dosage: 20 ONCE DAILY PO
     Route: 048
     Dates: start: 20110111, end: 20110129

REACTIONS (3)
  - CONDITION AGGRAVATED [None]
  - CRYOGLOBULINAEMIA [None]
  - HYPERVISCOSITY SYNDROME [None]
